FAERS Safety Report 13144806 (Version 1)
Quarter: 2017Q1

REPORT INFORMATION
  Report Type: Spontaneous
  Country: JP (occurrence: JP)
  Receive Date: 20170124
  Receipt Date: 20170124
  Transmission Date: 20170428
  Serious: Yes (Other)
  Sender: FDA-Public Use
  Company Number: JP-PFIZER INC-2016508933

PATIENT
  Age: 76 Year
  Sex: Male

DRUGS (1)
  1. GENOTROPIN TC 5.3MG [Suspect]
     Active Substance: SOMATROPIN

REACTIONS (15)
  - Cerebral infarction [Unknown]
  - Tendon pain [Unknown]
  - Ligament pain [Unknown]
  - Myalgia [Unknown]
  - Hip deformity [Unknown]
  - Weight increased [Unknown]
  - Tinea pedis [Unknown]
  - Therapeutic response decreased [Unknown]
  - Chondrodynia [Unknown]
  - Nocturia [Unknown]
  - Osteochondrosis [Unknown]
  - Haemorrhage [Unknown]
  - Gait disturbance [Unknown]
  - Weight decreased [Unknown]
  - Asthenia [Unknown]

NARRATIVE: CASE EVENT DATE: 2014
